FAERS Safety Report 6925023-X (Version None)
Quarter: 2010Q3

REPORT INFORMATION
  Report Type: 
  Country: None (occurrence: None)
  Receive Date: 20100816
  Receipt Date: 20100804
  Transmission Date: 20110219
  Serious: Yes (Other)
  Sender: FDA-Public Use
  Company Number: JP-PFIZER INC-2010077202

PATIENT
  Age: 78 Year
  Sex: Male
  Weight: 46 kg

DRUGS (19)
  1. ZYVOX [Suspect]
     Indication: STAPHYLOCOCCAL SEPSIS
     Dosage: 600 MG, 2X/DAY
     Route: 041
     Dates: start: 20100612, end: 20100614
  2. PLETAL [Concomitant]
     Indication: ARTERIOSCLEROSIS OBLITERANS
     Dosage: 100 MG, 2X/DAY
     Route: 048
     Dates: start: 20100412
  3. ASPIRIN [Concomitant]
     Indication: ARTERIOSCLEROSIS OBLITERANS
     Dosage: 100 MG, 1X/DAY
     Route: 048
     Dates: start: 20100419
  4. TAKEPRON [Concomitant]
     Indication: GASTRIC ULCER
     Dosage: 15 MG, 1X/DAY
     Route: 048
  5. ANPLAG [Concomitant]
     Indication: ARTERIOSCLEROSIS OBLITERANS
     Dosage: 100 MG, 3X/DAY
     Route: 048
     Dates: start: 20100419
  6. LIPITOR [Concomitant]
     Indication: ARTERIOSCLEROSIS OBLITERANS
     Dosage: 10 MG, 1X/DAY
     Route: 048
     Dates: start: 20100419
  7. OLMESARTAN MEDOXOMIL [Concomitant]
     Indication: HYPERTENSION
     Dosage: 20 MG, 1X/DAY
     Route: 048
  8. ADETPHOS [Concomitant]
     Indication: DIZZINESS
     Dosage: 60 MG, 3X/DAY
     Route: 048
  9. METHYCOBAL [Concomitant]
     Indication: DIZZINESS
     Dosage: 0.5 MG, 3X/DAY
     Route: 048
  10. RIVOTRIL [Concomitant]
     Indication: PAIN
     Dosage: 0.5 MG, 1X/DAY
     Route: 048
     Dates: start: 20100518
  11. SPIRIVA [Concomitant]
     Indication: EMPHYSEMA
     Dosage: 0.018 MG, 1X/DAY
  12. ALPROSTADIL ALFADEX [Concomitant]
     Indication: ARTERIOSCLEROSIS OBLITERANS
     Dosage: 0.02 MG, 2X/DAY
     Route: 042
     Dates: start: 20100414, end: 20100518
  13. LOXONIN [Concomitant]
     Indication: PAIN
     Dosage: 60 MG, AS NEEDED
     Route: 048
     Dates: start: 20100416, end: 20100521
  14. WARFARIN [Concomitant]
     Indication: ARTERIOSCLEROSIS OBLITERANS
     Dosage: 2 MG, 1X/DAY
     Route: 048
     Dates: start: 20100423, end: 20100525
  15. HEPARIN [Concomitant]
     Indication: ARTERIOSCLEROSIS OBLITERANS
     Dosage: 10000 IU, 1X/DAY
     Route: 042
     Dates: end: 20100518
  16. MORPHINE HYDROCHLORIDE [Concomitant]
     Indication: PAIN
     Dosage: 10 MG, 3X/DAY
     Route: 048
     Dates: start: 20100521
  17. ALPROSTADIL [Concomitant]
     Indication: ARTERIOSCLEROSIS OBLITERANS
     Dosage: 0.01 MG, 1X/DAY
     Route: 042
     Dates: start: 20100519
  18. MINOPEN [Concomitant]
     Indication: SEPSIS
     Dosage: 100 MG, 2X/DAY
     Route: 042
     Dates: start: 20100521, end: 20100614
  19. CEFOPERAZONE W/SULBACTAM [Concomitant]
     Indication: SEPSIS
     Dosage: 1 G, 2X/DAY
     Route: 042
     Dates: start: 20100519, end: 20100612

REACTIONS (1)
  - RENAL IMPAIRMENT [None]
